FAERS Safety Report 7009834-0 (Version None)
Quarter: 2010Q3

REPORT INFORMATION
  Report Type: 
  Country: None (occurrence: None)
  Receive Date: 20100923
  Receipt Date: 20100916
  Transmission Date: 20110219
  Serious: Yes (Other)
  Sender: FDA-Public Use
  Company Number: AR-ROCHE-728106

PATIENT
  Age: 1 Year
  Sex: Female
  Weight: 10.6 kg

DRUGS (2)
  1. OSELTAMIVIR [Suspect]
     Dosage: FOR 4 DAYS
     Route: 065
  2. OSELTAMIVIR [Suspect]
     Dosage: FOR 8 DAYS
     Route: 065
     Dates: start: 20090720

REACTIONS (3)
  - DRUG INEFFECTIVE [None]
  - LUNG DISORDER [None]
  - PATHOGEN RESISTANCE [None]
